FAERS Safety Report 9923244 (Version 1)
Quarter: 2014Q1

REPORT INFORMATION
  Report Type: Spontaneous
  Country: US (occurrence: US)
  Receive Date: 20140225
  Receipt Date: 20140225
  Transmission Date: 20141002
  Serious: No
  Sender: FDA-Public Use
  Company Number: US-AMGEN-USASP2013072687

PATIENT
  Age: 51 Year
  Sex: Male
  Weight: 92.52 kg

DRUGS (14)
  1. ENBREL [Suspect]
     Indication: PRODUCT USED FOR UNKNOWN INDICATION
     Dosage: 50 MG, QWK
     Route: 058
  2. GABAPENTIN [Concomitant]
     Dosage: 100 MG, UNK
     Route: 065
  3. METHOTREXATE [Concomitant]
     Dosage: 2.5 MG, UNK
     Route: 065
  4. FOLIC ACID [Concomitant]
     Route: 065
  5. OXYCODONE [Concomitant]
     Dosage: 5 MG, UNK
     Route: 065
  6. MULTIVITAMIN                       /00097801/ [Concomitant]
     Route: 065
  7. VITAMIN D                          /00107901/ [Concomitant]
     Dosage: 1000 UNIT, UNK
     Route: 065
  8. ZOVIRAX                            /00587301/ [Concomitant]
     Dosage: 5 %, UNK
     Route: 065
  9. OXYCONTIN [Concomitant]
     Dosage: 80 MG, UNK
     Route: 065
  10. OMEPRAZOLE [Concomitant]
     Dosage: 20 MG, UNK
     Route: 065
  11. ONDANSETRON [Concomitant]
     Dosage: 04 MG, UNK
     Route: 065
  12. SPIRONOLACTON [Concomitant]
     Dosage: 100 MG, UNK
     Route: 065
  13. FUROSEMIDE [Concomitant]
     Dosage: 20 MG, UNK
     Route: 065
  14. CLONAZEPAM [Concomitant]
     Dosage: 01 MG, UNK
     Route: 065

REACTIONS (3)
  - Dizziness [Unknown]
  - Headache [Unknown]
  - Sinusitis [Unknown]
